FAERS Safety Report 10241064 (Version 2)
Quarter: 2014Q2

REPORT INFORMATION
  Report Type: Spontaneous
  Country: US (occurrence: US)
  Receive Date: 20140617
  Receipt Date: 20140623
  Transmission Date: 20141212
  Serious: No
  Sender: FDA-Public Use
  Company Number: US-ROXANE LABORATORIES, INC.-2014-RO-00912RO

PATIENT
  Sex: Female

DRUGS (14)
  1. PREDNISONE [Suspect]
     Indication: MYASTHENIA GRAVIS
     Route: 065
  2. VICODIN [Concomitant]
     Route: 065
  3. ZETIA [Concomitant]
     Route: 065
  4. ASPIRIN [Concomitant]
     Route: 065
  5. RANITIDINE [Concomitant]
     Route: 065
  6. METFORMIN [Concomitant]
     Route: 065
  7. MISOPROSTOL [Concomitant]
     Route: 065
  8. OXYBUTIN [Concomitant]
     Route: 065
  9. AZATHIOPRINE [Concomitant]
     Route: 065
  10. OMEPRAZOLE [Concomitant]
     Route: 065
  11. GLIPERIDE [Concomitant]
     Route: 065
  12. VICTOZA [Concomitant]
     Route: 065
  13. LEVEMIR [Concomitant]
     Indication: DIABETES MELLITUS
     Route: 065
  14. MESTINON [Concomitant]
     Route: 065

REACTIONS (3)
  - Weight increased [Not Recovered/Not Resolved]
  - Weight decreased [Not Recovered/Not Resolved]
  - Blood glucose increased [Not Recovered/Not Resolved]
